FAERS Safety Report 14934653 (Version 6)
Quarter: 2019Q4

REPORT INFORMATION
  Report Type: Spontaneous
  Country: NL (occurrence: NL)
  Receive Date: 20180524
  Receipt Date: 20191111
  Transmission Date: 20200122
  Serious: Yes (Hospitalization)
  Sender: FDA-Public Use
  Company Number: NL-TEVA-2018-NL-896795

PATIENT
  Age: 51 Year
  Sex: Male
  Weight: 80 kg

DRUGS (4)
  1. NAPROXEN 500MG [Concomitant]
     Active Substance: NAPROXEN
     Dosage: 2X DAILY 1 TABLET
  2. CLINDAMYCINE CAPSULE 300MG CAPSULE, 300 MG (MILLIGRAM) [Suspect]
     Active Substance: CLINDAMYCIN
     Indication: LOCALISED INFECTION
     Dosage: 3 TABLETS A DAY. 06:00 / 14:00 AND 22:00
     Dates: start: 20171002
  3. OXYCODON  10MG [Concomitant]
     Dosage: 2X DAILY 1 TABLET
  4. PARACETAMOL 500MG [Concomitant]
     Active Substance: ACETAMINOPHEN
     Dosage: 3X DAILY 2 TABLETS???3X DAILY 2 TABLETS

REACTIONS (2)
  - Erythema [Recovered/Resolved]
  - Peripheral swelling [Recovered/Resolved]

NARRATIVE: CASE EVENT DATE: 20171006
